FAERS Safety Report 17499818 (Version 1)
Quarter: 2020Q1

REPORT INFORMATION
  Report Type: Spontaneous
  Country: US (occurrence: US)
  Receive Date: 20200304
  Receipt Date: 20200304
  Transmission Date: 20200409
  Serious: Yes (Hospitalization, Other)
  Sender: FDA-Public Use
  Company Number: US-TAKEDA-2020TUS012270

PATIENT
  Sex: Female
  Weight: 75.74 kg

DRUGS (2)
  1. DEXILANT [Suspect]
     Active Substance: DEXLANSOPRAZOLE
     Indication: GASTROOESOPHAGEAL REFLUX DISEASE
     Dosage: UNK, QD
     Route: 065
     Dates: start: 201911
  2. DEXILANT [Suspect]
     Active Substance: DEXLANSOPRAZOLE
     Dosage: UNK
     Route: 065

REACTIONS (8)
  - Nausea [Not Recovered/Not Resolved]
  - Myocardial infarction [Not Recovered/Not Resolved]
  - Dyspnoea [Not Recovered/Not Resolved]
  - Abdominal pain upper [Not Recovered/Not Resolved]
  - Near death experience [Not Recovered/Not Resolved]
  - Heart rate abnormal [Not Recovered/Not Resolved]
  - Dizziness [Not Recovered/Not Resolved]
  - Flatulence [Not Recovered/Not Resolved]
